FAERS Safety Report 4731137-5 (Version None)
Quarter: 2005Q3

REPORT INFORMATION
  Report Type: 
  Country: None (occurrence: None)
  Receive Date: 20050721
  Receipt Date: 20050407
  Transmission Date: 20060218
  Serious: No
  Sender: FDA-Public Use
  Company Number: 2005SP000104

PATIENT
  Age: 55 Year
  Sex: Male
  Weight: 81.6475 kg

DRUGS (4)
  1. LUNESTA [Suspect]
     Dosage: 2MG;X1;ORAL
     Route: 048
     Dates: start: 20050406
  2. VASOTEC RPD [Concomitant]
  3. SYNTHROID [Concomitant]
  4. CELEBREX [Concomitant]

REACTIONS (3)
  - DRUG INEFFECTIVE [None]
  - DYSGEUSIA [None]
  - INSOMNIA [None]
